FAERS Safety Report 10006167 (Version 1)
Quarter: 2014Q1

REPORT INFORMATION
  Report Type: Report from Study
  Country: US (occurrence: US)
  Receive Date: 20140313
  Receipt Date: 20140313
  Transmission Date: 20141002
  Serious: Yes (Death)
  Sender: FDA-Public Use
  Company Number: US-ASTELLAS-2014US002461

PATIENT
  Sex: Female

DRUGS (1)
  1. ERLOTINIB TABLET [Suspect]
     Indication: METASTASES TO LUNG
     Dosage: 150 MG, UID/QD
     Route: 048
     Dates: start: 20121012

REACTIONS (1)
  - Death [Fatal]
